FAERS Safety Report 7943937-9 (Version None)
Quarter: 2011Q4

REPORT INFORMATION
  Report Type: 
  Country: None (occurrence: None)
  Receive Date: 20111128
  Receipt Date: 20111117
  Transmission Date: 20120403
  Serious: Yes (Other)
  Sender: FDA-Public Use
  Company Number: CA-ROCHE-1014225

PATIENT
  Sex: Female

DRUGS (3)
  1. VITAMIN D [Concomitant]
  2. CALCIUM [Concomitant]
  3. XELODA [Suspect]
     Indication: COLON CANCER
     Route: 048
     Dates: start: 20111029, end: 20111111

REACTIONS (3)
  - BLOOD AMYLASE INCREASED [None]
  - PAROTID GLAND INFLAMMATION [None]
  - PAROTITIS [None]
